FAERS Safety Report 6386969-7 (Version None)
Quarter: 2009Q4

REPORT INFORMATION
  Report Type: 
  Country: None (occurrence: None)
  Receive Date: 20091002
  Receipt Date: 20090929
  Transmission Date: 20100525
  Serious: Yes (Other)
  Sender: FDA-Public Use
  Company Number: ZA-WATSON-2009-08085

PATIENT
  Age: 9 Year
  Sex: Female

DRUGS (9)
  1. FLUOXETINE HCL [Suspect]
     Indication: DEPRESSION
     Dosage: 5 MG, DAILY
  2. ISONIAZID [Suspect]
     Indication: TUBERCULOSIS
     Dosage: UNK
  3. RITONAVIR [Suspect]
     Indication: ANTIRETROVIRAL THERAPY
     Dosage: UNK
  4. STAVUDINE [Concomitant]
     Indication: ANTIRETROVIRAL THERAPY
     Dosage: UNK
  5. LAMIVUDINE [Concomitant]
     Indication: ANTIRETROVIRAL THERAPY
     Dosage: UNK
  6. LOPINAVIR [Concomitant]
     Indication: ANTIRETROVIRAL THERAPY
     Dosage: UNK
  7. RIFAMPICIN [Concomitant]
     Indication: TUBERCULOSIS
     Dosage: UNK
  8. PYRAZINAMIDE [Concomitant]
     Indication: TUBERCULOSIS
     Dosage: UNK
  9. ETHIONAMIDE [Concomitant]
     Indication: TUBERCULOSIS
     Dosage: UNK

REACTIONS (3)
  - DELIRIUM [None]
  - DRUG INTERACTION [None]
  - SEROTONIN SYNDROME [None]
